FAERS Safety Report 5960055-X (Version None)
Quarter: 2008Q4

REPORT INFORMATION
  Report Type: 
  Country: None (occurrence: None)
  Receive Date: 20081119
  Receipt Date: 20081119
  Transmission Date: 20090506
  Serious: Yes (Hospitalization)
  Sender: FDA-Public Use
  Company Number: None

PATIENT
  Age: 54 Year
  Sex: Male

DRUGS (6)
  1. TRAZODONE HCL [Suspect]
     Indication: DEPRESSION
  2. CYCLOBENZAPRINE [Suspect]
     Indication: MUSCLE RELAXANT THERAPY
  3. GABAPENTIN [Concomitant]
  4. PIROXICAM [Concomitant]
  5. LEVOTHYROXINE SODIUM [Concomitant]
  6. ALBUTEROL [Concomitant]

REACTIONS (5)
  - BLOOD PRESSURE DECREASED [None]
  - INCORRECT DOSE ADMINISTERED [None]
  - OXYGEN SATURATION DECREASED [None]
  - PNEUMONIA ASPIRATION [None]
  - VOMITING [None]
